FAERS Safety Report 8021206-9 (Version None)
Quarter: 2012Q1

REPORT INFORMATION
  Report Type: 
  Country: None (occurrence: None)
  Receive Date: 20120104
  Receipt Date: 20111227
  Transmission Date: 20120608
  Serious: Yes (Hospitalization, Other)
  Sender: FDA-Public Use
  Company Number: US-BAYER-201042069NA

PATIENT
  Age: 36 Year
  Sex: Female
  Weight: 54.422 kg

DRUGS (8)
  1. ACIPHEX [Concomitant]
     Dosage: 20 MG, QD
     Route: 048
  2. AMOXICILLIN [Concomitant]
     Dosage: UNK
     Dates: start: 20081006
  3. MACROBID [Concomitant]
     Indication: VAGINITIS BACTERIAL
     Dosage: 100 MG, BID
     Route: 048
     Dates: start: 20081002, end: 20091009
  4. YASMIN [Suspect]
     Dosage: UNK
     Route: 048
     Dates: start: 20060310, end: 20070701
  5. YAZ [Suspect]
     Dosage: UNK
     Route: 048
     Dates: start: 20080924
  6. PREVACID [Concomitant]
     Dosage: UNK UNK, BID
     Dates: start: 20081003
  7. MULTI-VITAMINS [Concomitant]
  8. ERYTHROMYCIN [Concomitant]
     Dosage: UNK
     Dates: start: 20081006

REACTIONS (7)
  - CHOLECYSTITIS CHRONIC [None]
  - VOMITING [None]
  - ABORTION SPONTANEOUS [None]
  - CHOLECYSTITIS [None]
  - PREGNANCY ON ORAL CONTRACEPTIVE [None]
  - ABDOMINAL PAIN UPPER [None]
  - NAUSEA [None]
